FAERS Safety Report 7767102-3 (Version None)
Quarter: 2011Q3

REPORT INFORMATION
  Report Type: 
  Country: None (occurrence: None)
  Receive Date: 20110922
  Receipt Date: 20110701
  Transmission Date: 20111222
  Serious: No
  Sender: FDA-Public Use
  Company Number: US-ASTRAZENECA-2011SE38646

PATIENT
  Age: 51 Year
  Sex: Male
  Weight: 111.1 kg

DRUGS (4)
  1. SEROQUEL [Suspect]
     Indication: BIPOLAR DISORDER
     Dosage: 100 MG IN THE MORNING, 50 MG IN THE AFTERNOON AND 50 MG AT NIGHT
     Route: 048
     Dates: start: 20090101, end: 20110625
  2. SEROQUEL [Suspect]
     Indication: PANIC ATTACK
     Dosage: 100 MG IN THE MORNING, 50 MG IN THE AFTERNOON AND 50 MG AT NIGHT
     Route: 048
     Dates: start: 20090101, end: 20110625
  3. SEROQUEL [Suspect]
     Indication: ANXIETY
     Dosage: 100 MG IN THE MORNING, 50 MG IN THE AFTERNOON AND 50 MG AT NIGHT
     Route: 048
     Dates: start: 20090101, end: 20110625
  4. TRAMADOL HCL [Concomitant]
     Indication: OSTEOARTHRITIS

REACTIONS (4)
  - ANXIETY [None]
  - DRUG WITHDRAWAL SYNDROME [None]
  - TACHYPHRENIA [None]
  - DRUG DOSE OMISSION [None]
